FAERS Safety Report 19280097 (Version 1)
Quarter: 2021Q2

REPORT INFORMATION
  Report Type: Spontaneous
  Country: JP (occurrence: JP)
  Receive Date: 20210520
  Receipt Date: 20210520
  Transmission Date: 20210717
  Serious: Yes (Hospitalization)
  Sender: FDA-Public Use
  Company Number: JP-ASTRAZENECA-2021A443521

PATIENT
  Age: 67 Year
  Sex: Male
  Weight: 73 kg

DRUGS (9)
  1. JARDIANCE [Concomitant]
     Active Substance: EMPAGLIFLOZIN
  2. CARBAZOCHROME SULFONATE [Concomitant]
  3. LORATADINE. [Concomitant]
     Active Substance: LORATADINE
  4. TRANEXAMIC ACID. [Concomitant]
     Active Substance: TRANEXAMIC ACID
  5. ROSUVASTATIN. [Suspect]
     Active Substance: ROSUVASTATIN
     Indication: HYPERLIPIDAEMIA
     Route: 048
     Dates: start: 20200801
  6. PARMODIA [Suspect]
     Active Substance: PEMAFIBRATE
     Indication: HYPERLIPIDAEMIA
     Route: 048
  7. EQUMET [Concomitant]
     Active Substance: METFORMIN HYDROCHLORIDE\VILDAGLIPTIN
  8. TRESIBA [Concomitant]
     Active Substance: INSULIN DEGLUDEC
  9. HUMALOG [Concomitant]
     Active Substance: INSULIN LISPRO

REACTIONS (2)
  - Prostatitis [Recovering/Resolving]
  - Rhabdomyolysis [Recovering/Resolving]

NARRATIVE: CASE EVENT DATE: 20201028
